FAERS Safety Report 24201791 (Version 1)
Quarter: 2024Q3

REPORT INFORMATION
  Report Type: Spontaneous
  Country: CA (occurrence: CA)
  Receive Date: 20240812
  Receipt Date: 20240812
  Transmission Date: 20241017
  Serious: Yes (Other)
  Sender: TEVA
  Company Number: CA-TEVA-VS-3231197

PATIENT
  Age: 69 Year
  Sex: Female

DRUGS (1)
  1. PROPOFOL [Suspect]
     Active Substance: PROPOFOL
     Indication: Cardioversion
     Dosage: DOSE FORM: PROPOFOL INJECTION FOR I.V. INFUSION. 200MG/20ML; 500MG/50ML + 1000MG/100ML SINGLE USE...
     Route: 065

REACTIONS (1)
  - Hypersensitivity [Unknown]
